FAERS Safety Report 9799277 (Version 3)
Quarter: 2015Q3

REPORT INFORMATION
  Report Type: Spontaneous
  Country: US (occurrence: US)
  Receive Date: 20140106
  Receipt Date: 20150807
  Transmission Date: 20151125
  Serious: No
  Sender: FDA-Public Use
  Company Number: US-GILEAD-2010-0034159

PATIENT
  Age: 41 Year
  Sex: Female

DRUGS (46)
  1. LASIX [Concomitant]
     Active Substance: FUROSEMIDE
     Indication: OEDEMA
  2. HYDRODIURIL [Concomitant]
     Active Substance: HYDROCHLOROTHIAZIDE
  3. TRILIPIX [Concomitant]
     Active Substance: FENOFIBRIC ACID
  4. SINGULAIR [Concomitant]
     Active Substance: MONTELUKAST SODIUM
  5. TESSALON [Concomitant]
     Active Substance: BENZONATATE
     Indication: BRONCHITIS
  6. COLACE [Concomitant]
     Active Substance: DOCUSATE SODIUM
  7. PRILOSEC [Concomitant]
     Active Substance: OMEPRAZOLE MAGNESIUM
  8. LORTAB [Concomitant]
     Active Substance: ACETAMINOPHEN\HYDROCODONE BITARTRATE
  9. LETAIRIS [Suspect]
     Active Substance: AMBRISENTAN
     Indication: PULMONARY HYPERTENSION
     Route: 048
     Dates: start: 20101130
  10. SOLU-MEDROL [Concomitant]
     Active Substance: METHYLPREDNISOLONE SODIUM SUCCINATE
  11. DELTASONE [Concomitant]
     Active Substance: PREDNISONE
  12. ROBITUSSIN WITH CODEINE [Concomitant]
     Active Substance: CODEINE PHOSPHATE\GUAIFENESIN\PHENIRAMINE MALEATE
  13. LEVAQUIN [Concomitant]
     Active Substance: LEVOFLOXACIN
  14. CATAPRES [Concomitant]
     Active Substance: CLONIDINE HYDROCHLORIDE
  15. ANCEF [Concomitant]
     Active Substance: CEFAZOLIN SODIUM
  16. CLARITIN-D 12 HOUR [Concomitant]
     Active Substance: LORATADINE\PSEUDOEPHEDRINE SULFATE
     Indication: SINUSITIS
  17. ZANAFLEX [Concomitant]
     Active Substance: TIZANIDINE HYDROCHLORIDE
     Indication: TENSION HEADACHE
  18. PROMETHAZINE [Concomitant]
     Active Substance: PROMETHAZINE\PROMETHAZINE HYDROCHLORIDE
     Indication: NAUSEA
  19. TRACLEER [Concomitant]
     Active Substance: BOSENTAN
     Indication: PULMONARY HYPERTENSION
  20. ASPIRIN. [Concomitant]
     Active Substance: ASPIRIN
  21. ZOCOR [Concomitant]
     Active Substance: SIMVASTATIN
  22. DUONEB [Concomitant]
     Active Substance: ALBUTEROL SULFATE\IPRATROPIUM BROMIDE
  23. SYMBICORT [Concomitant]
     Active Substance: BUDESONIDE\FORMOTEROL FUMARATE DIHYDRATE
  24. GLUCOTROL [Concomitant]
     Active Substance: GLIPIZIDE
  25. ZOFRAN [Concomitant]
     Active Substance: ONDANSETRON HYDROCHLORIDE
  26. CALCARB+D [Concomitant]
  27. LOVAZA [Concomitant]
     Active Substance: OMEGA-3-ACID ETHYL ESTERS
  28. TRICOR [Concomitant]
     Active Substance: FENOFIBRATE
  29. NEURONTIN [Concomitant]
     Active Substance: GABAPENTIN
  30. CYMBALTA [Concomitant]
     Active Substance: DULOXETINE HYDROCHLORIDE
     Indication: ANXIETY DISORDER
  31. ATIVAN [Concomitant]
     Active Substance: LORAZEPAM
  32. K-DUR [Concomitant]
     Active Substance: POTASSIUM CHLORIDE
     Indication: OEDEMA
  33. OSCAL-D [Concomitant]
  34. EFFIENT [Concomitant]
     Active Substance: PRASUGREL HYDROCHLORIDE
     Indication: CORONARY ARTERY DISEASE
  35. PROVENTIL [Concomitant]
     Active Substance: ALBUTEROL
  36. TESSALON [Concomitant]
     Active Substance: BENZONATATE
     Indication: LUNG DISORDER
  37. NOVOLOG [Concomitant]
     Active Substance: INSULIN ASPART
  38. LIDODERM [Concomitant]
     Active Substance: LIDOCAINE
  39. JANUVIA [Concomitant]
     Active Substance: SITAGLIPTIN PHOSPHATE
  40. CARAFATE [Concomitant]
     Active Substance: SUCRALFATE
     Indication: GASTROOESOPHAGEAL REFLUX DISEASE
  41. DILAUDID [Concomitant]
     Active Substance: HYDROMORPHONE HYDROCHLORIDE
  42. SYNTHROID [Concomitant]
     Active Substance: LEVOTHYROXINE SODIUM
     Indication: HYPOTHYROIDISM
  43. LANTUS [Concomitant]
     Active Substance: INSULIN GLARGINE
     Indication: DIABETES MELLITUS
  44. PROTONIX [Concomitant]
     Active Substance: PANTOPRAZOLE SODIUM
  45. DESYREL [Concomitant]
     Active Substance: TRAZODONE HYDROCHLORIDE
     Indication: INSOMNIA
  46. MORPHINE [Concomitant]
     Active Substance: MORPHINE

REACTIONS (4)
  - Headache [Not Recovered/Not Resolved]
  - Pyrexia [Not Recovered/Not Resolved]
  - Nausea [Not Recovered/Not Resolved]
  - Oral mucosal blistering [Recovered/Resolved]

NARRATIVE: CASE EVENT DATE: 20101203
